FAERS Safety Report 7135506-8 (Version None)
Quarter: 2010Q4

REPORT INFORMATION
  Report Type: 
  Country: None (occurrence: None)
  Receive Date: 20101203
  Receipt Date: 20101119
  Transmission Date: 20110411
  Serious: No
  Sender: FDA-Public Use
  Company Number: US-ELI_LILLY_AND_COMPANY-US201009004499

PATIENT
  Sex: Female

DRUGS (15)
  1. CYMBALTA [Suspect]
     Indication: DEPRESSION
     Dosage: 20 MG, UNK
     Dates: start: 20100803, end: 20100805
  2. CYMBALTA [Suspect]
     Dosage: 30 MG, UNK
     Dates: start: 20100805, end: 20100826
  3. CYMBALTA [Suspect]
     Dosage: 20 MG, UNK
     Dates: start: 20100826
  4. RISPERDAL [Concomitant]
  5. ABILIFY [Concomitant]
     Indication: DEPRESSION
     Dosage: 5 MG, UNK
  6. SPIRIVA [Concomitant]
  7. ALBUTEROL [Concomitant]
  8. FOSAMAX [Concomitant]
     Indication: OSTEOPOROSIS
  9. CALCIUM [Concomitant]
  10. VITAMIN D [Concomitant]
  11. LORTAB [Concomitant]
     Dosage: UNK, AS NEEDED
  12. SSRI [Concomitant]
  13. DEPAKOTE [Concomitant]
     Indication: CEREBROVASCULAR ACCIDENT
  14. SYNTHROID [Concomitant]
     Indication: HYPOTHYROIDISM
  15. ACETAMINOPHEN [Concomitant]
     Dosage: 650 MG, AS NEEDED

REACTIONS (4)
  - ALANINE AMINOTRANSFERASE INCREASED [None]
  - ASPARTATE AMINOTRANSFERASE INCREASED [None]
  - CHRONIC OBSTRUCTIVE PULMONARY DISEASE [None]
  - CONFUSIONAL STATE [None]
